FAERS Safety Report 6827400-4 (Version None)
Quarter: 2010Q3

REPORT INFORMATION
  Report Type: 
  Country: None (occurrence: None)
  Receive Date: 20100709
  Receipt Date: 20070111
  Transmission Date: 20110219
  Serious: No
  Sender: FDA-Public Use
  Company Number: US-PFIZER INC-2007004742

PATIENT
  Sex: Male
  Weight: 77.11 kg

DRUGS (10)
  1. CHANTIX [Suspect]
     Indication: SMOKING CESSATION THERAPY
     Dates: start: 20061201
  2. SIMVASTATIN [Concomitant]
  3. LISINOPRIL [Concomitant]
  4. OMEPRAZOLE [Concomitant]
  5. AVANDIA [Concomitant]
  6. REMERON [Concomitant]
  7. DIGOXIN [Concomitant]
  8. GLYBURIDE [Concomitant]
  9. ACETYLSALICYLIC ACID [Concomitant]
  10. DILTIAZEM [Concomitant]

REACTIONS (4)
  - DIARRHOEA [None]
  - DYSGEUSIA [None]
  - GASTROENTERITIS VIRAL [None]
  - NAUSEA [None]
